FAERS Safety Report 17841279 (Version 1)
Quarter: 2020Q2

REPORT INFORMATION
  Report Type: Other
  Country: CA (occurrence: CA)
  Receive Date: 20200529
  Receipt Date: 20200529
  Transmission Date: 20200714
  Serious: Yes (Other)
  Sender: FDA-Public Use
  Company Number: CA-APOTEX-2020AP011257

PATIENT
  Age: 69 Year
  Sex: Female

DRUGS (2)
  1. AMOXICILLIN/ CLAVULANIC ACID [Suspect]
     Active Substance: AMOXICILLIN\CLAVULANIC ACID
     Indication: DIVERTICULITIS
     Dosage: UNK
     Route: 058
  2. REPATHA [Suspect]
     Active Substance: EVOLOCUMAB
     Indication: PRODUCT USED FOR UNKNOWN INDICATION
     Dosage: UNK
     Route: 065

REACTIONS (3)
  - Paraesthesia [Unknown]
  - Diverticulitis [Unknown]
  - Hypoaesthesia [Unknown]
